FAERS Safety Report 5767970-0 (Version None)
Quarter: 2008Q2

REPORT INFORMATION
  Report Type: 
  Country: None (occurrence: None)
  Receive Date: 20080601
  Receipt Date: 20080226
  Transmission Date: 20081010
  Serious: Yes (Other)
  Sender: FDA-Public Use
  Company Number: US200802006003

PATIENT
  Sex: Male

DRUGS (2)
  1. BYETTA [Suspect]
     Dosage: 10 UG, SUBCUTANEOUS ; 10 UG, SUBCUTANEOUS
     Route: 058
     Dates: start: 20080201, end: 20080201
  2. BYETTA [Suspect]
     Dosage: 10 UG, SUBCUTANEOUS ; 10 UG, SUBCUTANEOUS
     Route: 058
     Dates: start: 20080226

REACTIONS (1)
  - ANAPHYLACTIC SHOCK [None]
